FAERS Safety Report 10075913 (Version 2)
Quarter: 2014Q2

REPORT INFORMATION
  Report Type: Report from Study
  Country: US (occurrence: US)
  Receive Date: 20140414
  Receipt Date: 20140428
  Transmission Date: 20141212
  Serious: Yes (Death, Hospitalization, Other)
  Sender: FDA-Public Use
  Company Number: US-SA-2014SA044746

PATIENT
  Age: 67 Year
  Sex: Female
  Weight: 63.3 kg

DRUGS (4)
  1. CLOFARABINE [Suspect]
     Indication: ACUTE MYELOID LEUKAEMIA
     Route: 065
     Dates: start: 20140318, end: 20140322
  2. CLOFARABINE [Suspect]
     Indication: ACUTE MYELOID LEUKAEMIA
     Route: 065
     Dates: start: 20140216
  3. FLOLAN [Concomitant]
     Indication: ACUTE RESPIRATORY DISTRESS SYNDROME
  4. TOBRAMYCIN [Concomitant]
     Dates: start: 20140324, end: 20140329

REACTIONS (5)
  - Aspiration [Unknown]
  - Colitis [Unknown]
  - Sepsis [Fatal]
  - Gastrointestinal stoma complication [Unknown]
  - Renal failure acute [Unknown]
